FAERS Safety Report 10833006 (Version 1)
Quarter: 2015Q1

REPORT INFORMATION
  Report Type: Report from Study
  Country: US (occurrence: US)
  Receive Date: 20150219
  Receipt Date: 20150219
  Transmission Date: 20150721
  Serious: No
  Sender: FDA-Public Use
  Company Number: US-ABBVIE-14P-163-1197170-00

PATIENT
  Age: 53 Year
  Sex: Female
  Weight: 54.48 kg

DRUGS (5)
  1. ESTROGEN [Concomitant]
     Active Substance: ESTRONE\SUS SCROFA OVARY
     Indication: HORMONE REPLACEMENT THERAPY
  2. FOLIC ACID. [Concomitant]
     Active Substance: FOLIC ACID
     Indication: VITAMIN SUPPLEMENTATION
  3. METHOTREXATE [Concomitant]
     Active Substance: METHOTREXATE
     Indication: RHEUMATOID ARTHRITIS
  4. HUMIRA [Suspect]
     Active Substance: ADALIMUMAB
     Indication: RHEUMATOID ARTHRITIS
     Route: 058
     Dates: start: 2013
  5. FOLIC ACID. [Concomitant]
     Active Substance: FOLIC ACID
     Indication: PROPHYLAXIS

REACTIONS (11)
  - Malaise [Unknown]
  - Weight decreased [Not Recovered/Not Resolved]
  - Panic attack [Unknown]
  - Joint swelling [Not Recovered/Not Resolved]
  - Anxiety [Unknown]
  - Wound complication [Recovered/Resolved]
  - Dry skin [Recovered/Resolved]
  - Pollakiuria [Unknown]
  - Nervousness [Unknown]
  - Erythema [Not Recovered/Not Resolved]
  - Bronchitis [Recovered/Resolved]

NARRATIVE: CASE EVENT DATE: 201307
